FAERS Safety Report 14083203 (Version 1)
Quarter: 2017Q4

REPORT INFORMATION
  Report Type: Spontaneous
  Country: US (occurrence: None)
  Receive Date: 20171013
  Receipt Date: 20171013
  Transmission Date: 20180321
  Serious: Yes (Hospitalization)
  Sender: FDA-Public Use
  Company Number: None

PATIENT
  Age: 68 Year
  Sex: Male
  Weight: 78.47 kg

DRUGS (2)
  1. ENZALUTAMIDE [Suspect]
     Active Substance: ENZALUTAMIDE
     Indication: PROSTATE CANCER
     Route: 048
     Dates: start: 20160719
  2. RADIUM RA-223 DICHLORIDE. [Suspect]
     Active Substance: RADIUM RA-223 DICHLORIDE
     Route: 042
     Dates: start: 20160726, end: 20170110

REACTIONS (2)
  - Shock [None]
  - Ventricular tachycardia [None]

NARRATIVE: CASE EVENT DATE: 20170622
